FAERS Safety Report 5263353-0 (Version None)
Quarter: 2007Q1

REPORT INFORMATION
  Report Type: 
  Country: None (occurrence: None)
  Receive Date: 20070313
  Receipt Date: 20070306
  Transmission Date: 20070707
  Serious: Yes (Other)
  Sender: FDA-Public Use
  Company Number: GB-SP-2005-02841

PATIENT
  Age: 79 Year
  Sex: Female

DRUGS (2)
  1. IMMUCYST [Suspect]
     Indication: BLADDER CANCER
     Dosage: WEEKLY DEC-04 TO JAN-05 (6) AND WEEKLY 29-APR TO 13-MAY-05 (3)
     Route: 043
     Dates: start: 20041201, end: 20050513
  2. REGULAN [Concomitant]

REACTIONS (1)
  - CYSTITIS NONINFECTIVE [None]
